FAERS Safety Report 15230282 (Version 1)
Quarter: 2018Q3

REPORT INFORMATION
  Report Type: Spontaneous
  Country: US (occurrence: US)
  Receive Date: 20180802
  Receipt Date: 20180802
  Transmission Date: 20181010
  Serious: Yes (Other)
  Sender: FDA-Public Use
  Company Number: US-ACCORD-067873

PATIENT
  Age: 57 Year
  Sex: Female
  Weight: 99.79 kg

DRUGS (10)
  1. DOCETAXEL ACCORD [Suspect]
     Active Substance: DOCETAXEL
     Indication: INVASIVE DUCTAL BREAST CARCINOMA
     Dosage: NUMBER OF CYCLES: 04
     Dates: start: 20140224, end: 20140428
  2. DOXORUBICIN [Suspect]
     Active Substance: DOXORUBICIN
     Indication: INVASIVE DUCTAL BREAST CARCINOMA
     Dosage: NO OF CYCLE: 03
  3. LOVASTATIN. [Concomitant]
     Active Substance: LOVASTATIN
     Dates: start: 1995
  4. PARACETAMOL [Concomitant]
     Active Substance: ACETAMINOPHEN
     Dates: start: 1995
  5. METFORMIN [Concomitant]
     Active Substance: METFORMIN HYDROCHLORIDE
     Dosage: STRENGTH: 100 MG
     Dates: start: 1995
  6. LETROZOLE. [Concomitant]
     Active Substance: LETROZOLE
     Dosage: STRENGTH: 2.5 MG
  7. AMLODIPINE [Concomitant]
     Active Substance: AMLODIPINE BESYLATE
     Dosage: STRENGTH: 5 MG
     Dates: start: 1995
  8. LOSARTAN. [Concomitant]
     Active Substance: LOSARTAN
     Dosage: STRENGTH: 40 MG
  9. CYTOXAN [Suspect]
     Active Substance: CYCLOPHOSPHAMIDE
     Indication: INVASIVE DUCTAL BREAST CARCINOMA
     Dosage: NUMBER OF CYCLES: 03
  10. LISINOPRIL. [Concomitant]
     Active Substance: LISINOPRIL
     Dosage: STRENGTH: 20 MG
     Dates: start: 1995

REACTIONS (1)
  - Alopecia [Not Recovered/Not Resolved]

NARRATIVE: CASE EVENT DATE: 201403
